FAERS Safety Report 4618220-X (Version None)
Quarter: 2005Q1

REPORT INFORMATION
  Report Type: 
  Country: None (occurrence: None)
  Receive Date: 20050324
  Receipt Date: 20041104
  Transmission Date: 20050727
  Serious: Yes (Other)
  Sender: FDA-Public Use
  Company Number: JP-ABBOTT-04P-087-0282405-00

PATIENT
  Sex: Male

DRUGS (3)
  1. SEVORANE LIQUID FOR INHALATION [Suspect]
     Indication: ANAESTHESIA
     Dosage: 2-5 %
     Dates: start: 20000302, end: 20000302
  2. MIDAZOLAM [Concomitant]
     Indication: PREMEDICATION
     Route: 048
     Dates: start: 20000302, end: 20000302
  3. NITROUS OXIDE [Concomitant]
     Indication: ANAESTHESIA
     Route: 055
     Dates: start: 20000302, end: 20000302

REACTIONS (1)
  - RHABDOMYOLYSIS [None]
